FAERS Safety Report 13498280 (Version 1)
Quarter: 2017Q2

REPORT INFORMATION
  Report Type: Spontaneous
  Country: IL (occurrence: IL)
  Receive Date: 20170429
  Receipt Date: 20170429
  Transmission Date: 20170830
  Serious: Yes (Hospitalization)
  Sender: FDA-Public Use
  Company Number: IL-ABBVIE-17K-082-1943301-00

PATIENT
  Age: 25 Year
  Sex: Female

DRUGS (4)
  1. HUMIRA [Suspect]
     Active Substance: ADALIMUMAB
     Indication: CROHN^S DISEASE
     Route: 058
  2. HUMIRA [Suspect]
     Active Substance: ADALIMUMAB
     Route: 058
  3. HUMIRA [Suspect]
     Active Substance: ADALIMUMAB
     Route: 058
     Dates: start: 201612
  4. REMICADE [Suspect]
     Active Substance: INFLIXIMAB
     Indication: PRODUCT USED FOR UNKNOWN INDICATION
     Route: 065

REACTIONS (11)
  - Pain in extremity [Unknown]
  - Heart rate increased [Unknown]
  - Cough [Unknown]
  - Back pain [Unknown]
  - Dysphonia [Unknown]
  - Crohn^s disease [Unknown]
  - Bronchitis [Unknown]
  - Gastrointestinal inflammation [Unknown]
  - Appendicitis [Unknown]
  - Malaise [Unknown]
  - Intestinal resection [Unknown]

NARRATIVE: CASE EVENT DATE: 2015
